FAERS Safety Report 14476799 (Version 1)
Quarter: 2018Q1

REPORT INFORMATION
  Report Type: Spontaneous
  Country: JP (occurrence: JP)
  Receive Date: 20180201
  Receipt Date: 20180201
  Transmission Date: 20180509
  Serious: Yes (Other)
  Sender: FDA-Public Use
  Company Number: JP-CORDEN PHARMA LATINA S.P.A.-JP-2018COR000007

PATIENT
  Age: 62 Year
  Sex: Male

DRUGS (3)
  1. RADIOTHERAPY [Concomitant]
     Active Substance: RADIATION THERAPY
     Indication: NEUROENDOCRINE CARCINOMA
     Dosage: 70 GY/35 TIME OF INTENSITY-MODULATED RADIATION THERAPY
  2. CARBOPLATIN. [Suspect]
     Active Substance: CARBOPLATIN
     Indication: NEUROENDOCRINE CARCINOMA
     Dosage: AUC 5 MG/ML/MIN ON DAY 1
     Route: 065
  3. ETOPOSIDE. [Suspect]
     Active Substance: ETOPOSIDE
     Indication: NEUROENDOCRINE CARCINOMA
     Dosage: 80 MG/M2 FOR 3 DAYS (ON DAY 13)
     Route: 065

REACTIONS (1)
  - Febrile neutropenia [Recovered/Resolved]
